FAERS Safety Report 10063691 (Version 3)
Quarter: 2014Q2

REPORT INFORMATION
  Report Type: Report from Study
  Country: JP (occurrence: JP)
  Receive Date: 20140407
  Receipt Date: 20140523
  Transmission Date: 20141212
  Serious: Yes (Other)
  Sender: FDA-Public Use
  Company Number: PHHY2013JP155937

PATIENT
  Age: 70 Year
  Sex: Male

DRUGS (2)
  1. TASIGNA [Suspect]
     Indication: CHRONIC MYELOID LEUKAEMIA
     Dosage: 300 MG, DAILY
     Route: 048
     Dates: start: 20131001
  2. TASIGNA [Suspect]
     Dosage: 450 MG, DAILY
     Route: 048

REACTIONS (2)
  - Electrocardiogram QT prolonged [Recovering/Resolving]
  - Blood glucose increased [Recovering/Resolving]
